FAERS Safety Report 6359089-5 (Version None)
Quarter: 2009Q3

REPORT INFORMATION
  Report Type: 
  Country: None (occurrence: None)
  Receive Date: 20090917
  Receipt Date: 20070604
  Transmission Date: 20100115
  Serious: Yes (Hospitalization, Other)
  Sender: FDA-Public Use
  Company Number: US-ASTRAZENECA-2006UW23781

PATIENT
  Age: 16899 Day
  Sex: Female
  Weight: 94.3 kg

DRUGS (25)
  1. SEROQUEL [Suspect]
     Indication: DIZZINESS
     Route: 048
     Dates: start: 20011120, end: 20040624
  2. SEROQUEL [Suspect]
     Dosage: 25 MG - 50 MG
     Route: 048
     Dates: start: 20001120
  3. SEROQUEL [Suspect]
     Route: 048
     Dates: start: 20020225, end: 20020923
  4. SEROQUEL [Suspect]
     Dosage: 25 MG - 100 MG
     Route: 048
     Dates: start: 20040325
  5. SEROQUEL [Suspect]
     Route: 048
     Dates: start: 20040913
  6. PHENERGAN [Concomitant]
     Route: 048
     Dates: start: 20000520
  7. HYDROCHLOROTHIAZIDE [Concomitant]
     Route: 048
     Dates: start: 20000520
  8. CLONIDINE [Concomitant]
     Dates: start: 20000520
  9. PROZAC [Concomitant]
     Dates: start: 20000520
  10. NEURONTIN [Concomitant]
     Route: 048
     Dates: start: 20000612
  11. TRAZODONE HYDROCHLORIDE [Concomitant]
     Dosage: 50 MG - 100 MG
     Route: 048
     Dates: start: 20000922
  12. PAXIL [Concomitant]
     Dates: start: 20010628
  13. WELLBUTRIN SR [Concomitant]
     Dates: start: 20020225
  14. KLONOPIN [Concomitant]
     Dates: start: 20020225
  15. PREVACID [Concomitant]
     Dates: start: 20020225
  16. TIAZAC [Concomitant]
     Dates: start: 20020225
  17. COMBIVENT [Concomitant]
     Dates: start: 20020225
  18. LASIX [Concomitant]
     Dates: start: 20020225
  19. TOPAMAX [Concomitant]
     Route: 048
     Dates: start: 20020923
  20. RISPERDAL [Concomitant]
     Route: 048
     Dates: start: 20020923
  21. PROTONIX [Concomitant]
     Route: 048
     Dates: start: 20030210
  22. METOPROLOL TARTRATE [Concomitant]
     Route: 048
     Dates: start: 20030210
  23. DARVOCET [Concomitant]
     Dates: start: 20030210
  24. NORVASC [Concomitant]
     Route: 048
     Dates: start: 20030427
  25. REGLAN [Concomitant]
     Route: 048
     Dates: start: 20030427

REACTIONS (3)
  - PANCREATITIS [None]
  - PANCREATITIS ACUTE [None]
  - PANCREATITIS RELAPSING [None]
